FAERS Safety Report 25763773 (Version 1)
Quarter: 2025Q3

REPORT INFORMATION
  Report Type: Spontaneous
  Country: US (occurrence: US)
  Receive Date: 20250905
  Receipt Date: 20250905
  Transmission Date: 20251021
  Serious: No
  Sender: DOMPE FARMACEUTICI
  Company Number: US-FARMAPROD-202411-4050

PATIENT
  Age: 69 Year
  Sex: Female

DRUGS (11)
  1. OXERVATE [Suspect]
     Active Substance: CENEGERMIN-BKBJ
     Indication: Neurotrophic keratopathy
     Route: 047
     Dates: start: 20241118, end: 20250114
  2. OXERVATE [Suspect]
     Active Substance: CENEGERMIN-BKBJ
  3. PROBIOTIC 10B [Concomitant]
  4. VITAMIN C [Concomitant]
     Active Substance: ASCORBIC ACID
  5. CALCIUM [Concomitant]
     Active Substance: CALCIUM
  6. SYSTANE (HYPROMELLOSE 2910 (4000 MPA.S)) [Concomitant]
     Active Substance: HYPROMELLOSE 2910 (4000 MPA.S)
  7. MIEBO [Concomitant]
     Active Substance: PERFLUOROHEXYLOCTANE
  8. FISH OIL [Concomitant]
     Active Substance: FISH OIL
  9. ADDERALL [Concomitant]
     Active Substance: AMPHETAMINE ASPARTATE\AMPHETAMINE SULFATE\DEXTROAMPHETAMINE SACCHARATE\DEXTROAMPHETAMINE SULFATE
  10. FAMOTIDINE [Concomitant]
     Active Substance: FAMOTIDINE
  11. GABAPENTIN [Concomitant]
     Active Substance: GABAPENTIN

REACTIONS (4)
  - Asthenopia [Unknown]
  - Eye pain [Recovered/Resolved]
  - Ocular discomfort [Unknown]
  - Headache [Recovered/Resolved]

NARRATIVE: CASE EVENT DATE: 20241121
